FAERS Safety Report 14669428 (Version 1)
Quarter: 2018Q1

REPORT INFORMATION
  Report Type: Spontaneous
  Country: NL (occurrence: NL)
  Receive Date: 20180322
  Receipt Date: 20180322
  Transmission Date: 20180509
  Serious: Yes (Hospitalization)
  Sender: FDA-Public Use
  Company Number: NL-TEVA-2018-NL-870316

PATIENT
  Age: 28 Year
  Sex: Female

DRUGS (3)
  1. OXAZEPAM 10MG [Concomitant]
     Active Substance: OXAZEPAM
     Dosage: IF NECESSARY
  2. LAMOTRIGINE KAUW-/TABLET, 200 MG (MILLIGRAM) [Suspect]
     Active Substance: LAMOTRIGINE
     Indication: BIPOLAR II DISORDER
     Dosage: 1 TIME PER DAY
     Dates: start: 20171201
  3. FLUTICASON-PROPIONAAT NEUSSPRAY 50UG/DO [Concomitant]
     Active Substance: FLUTICASONE PROPIONATE
     Dosage: IF NECESSARY

REACTIONS (5)
  - Dissociation [Recovering/Resolving]
  - Therapeutic response unexpected [Recovering/Resolving]
  - Psychiatric decompensation [Recovering/Resolving]
  - Suicidal ideation [Recovering/Resolving]
  - Psychotic symptom [Recovering/Resolving]

NARRATIVE: CASE EVENT DATE: 20180102
